FAERS Safety Report 4561410-5 (Version None)
Quarter: 2005Q1

REPORT INFORMATION
  Report Type: 
  Country: None (occurrence: None)
  Receive Date: 20050121
  Receipt Date: 20050110
  Transmission Date: 20050727
  Serious: Yes (Other)
  Sender: FDA-Public Use
  Company Number: 2004101233

PATIENT
  Age: 47 Year
  Sex: Female

DRUGS (3)
  1. LIPITOR [Suspect]
     Indication: HYPERCHOLESTEROLAEMIA
     Dosage: 10 MG (1 IN 1 D)
     Dates: start: 20030925
  2. ESCITALOPRAM (ESCITALOPRAM) [Concomitant]
  3. MESALAMINE [Concomitant]

REACTIONS (3)
  - CHEST PAIN [None]
  - MUSCLE NECROSIS [None]
  - MYOPATHY [None]
